FAERS Safety Report 20005113 (Version 1)
Quarter: 2021Q4

REPORT INFORMATION
  Report Type: Report from Study
  Country: US (occurrence: US)
  Receive Date: 20211027
  Receipt Date: 20211027
  Transmission Date: 20220303
  Serious: Yes (Hospitalization)
  Sender: FDA-Public Use
  Company Number: US-EISAI MEDICAL RESEARCH-EC-2021-100898

PATIENT
  Age: 57 Year
  Sex: Male

DRUGS (2)
  1. LENVIMA [Suspect]
     Active Substance: LENVATINIB
     Indication: Renal cancer
     Route: 048
     Dates: start: 20211001, end: 20211020
  2. KEYTRUDA [Concomitant]
     Active Substance: PEMBROLIZUMAB

REACTIONS (3)
  - Pleural effusion [Recovering/Resolving]
  - Internal haemorrhage [Recovering/Resolving]
  - Blood urine present [Not Recovered/Not Resolved]

NARRATIVE: CASE EVENT DATE: 20211001
